FAERS Safety Report 8911664 (Version 1)
Quarter: 2012Q4

REPORT INFORMATION
  Report Type: 
  Country: US (occurrence: US)
  Receive Date: 20121116
  Receipt Date: 20121116
  Transmission Date: 20130627
  Serious: Yes (Hospitalization)
  Sender: FDA-Public Use
  Company Number: US-BAYER-2012-117965

PATIENT
  Age: 34 Year
  Sex: Female

DRUGS (2)
  1. YAZ [Suspect]
     Dosage: UNK; daily 1 pack
     Route: 048
  2. EFFEXOR XR [Concomitant]
     Dosage: 150 mg, daily

REACTIONS (1)
  - Deep vein thrombosis [None]
